FAERS Safety Report 24694112 (Version 3)
Quarter: 2024Q4

REPORT INFORMATION
  Report Type: Spontaneous
  Country: AU (occurrence: AU)
  Receive Date: 20241204
  Receipt Date: 20241210
  Transmission Date: 20250115
  Serious: Yes (Death, Hospitalization, Other)
  Sender: BIOVITRUM
  Company Number: AU-BIOVITRUM-2024-AU-015373

PATIENT
  Age: 40 Year
  Sex: Male

DRUGS (4)
  1. ANAKINRA [Suspect]
     Active Substance: ANAKINRA
     Indication: Product used for unknown indication
     Dosage: 100 MG, TDS
     Route: 058
     Dates: start: 20241115
  2. ANAKINRA [Suspect]
     Active Substance: ANAKINRA
     Dosage: PER DAY
  3. ANAKINRA [Suspect]
     Active Substance: ANAKINRA
     Dosage: PER DAY
  4. ANAKINRA [Suspect]
     Active Substance: ANAKINRA
     Dosage: PER HOUR

REACTIONS (7)
  - Pancytopenia [Unknown]
  - Blood bilirubin increased [Unknown]
  - Hyperferritinaemia [Unknown]
  - Disease progression [Fatal]
  - Multiple organ dysfunction syndrome [Unknown]
  - Hypoxia [Unknown]
  - Liver disorder [Unknown]
